FAERS Safety Report 6216473-8 (Version None)
Quarter: 2009Q2

REPORT INFORMATION
  Report Type: 
  Country: None (occurrence: None)
  Receive Date: 20090603
  Receipt Date: 20090603
  Transmission Date: 20091009
  Serious: Yes (Life-Threatening, Hospitalization)
  Sender: FDA-Public Use
  Company Number: None

PATIENT
  Sex: Female
  Weight: 65.9 kg

DRUGS (1)
  1. SINGULAIR [Suspect]
     Indication: DYSPHONIA
     Dosage: SINULAR 10 MG. 1 A DAY PILL
     Dates: start: 20090423, end: 20090425

REACTIONS (9)
  - AGITATION [None]
  - ATRIAL FIBRILLATION [None]
  - DEPRESSION [None]
  - DRUG HYPERSENSITIVITY [None]
  - DYSPNOEA [None]
  - FATIGUE [None]
  - HEADACHE [None]
  - INSOMNIA [None]
  - SLUGGISHNESS [None]
